FAERS Safety Report 16642699 (Version 2)
Quarter: 2019Q3

REPORT INFORMATION
  Report Type: Spontaneous
  Country: ES (occurrence: ES)
  Receive Date: 20190729
  Receipt Date: 20190805
  Transmission Date: 20191004
  Serious: Yes (Other)
  Sender: FDA-Public Use
  Company Number: ES-PFIZER INC-2019320819

PATIENT
  Age: 58 Year
  Sex: Male
  Weight: 92 kg

DRUGS (8)
  1. CAPENON [Suspect]
     Active Substance: AMLODIPINE BESYLATE\OLMESARTAN MEDOXOMIL
     Indication: HYPERTENSION
     Dosage: 40/5 MG, QD
     Route: 048
     Dates: start: 20170715
  2. LIPOCOMB [Suspect]
     Active Substance: EZETIMIBE\ROSUVASTATIN ZINC
     Indication: BLOOD CHOLESTEROL INCREASED
     Dosage: 10/10 MG, QD
     Route: 048
     Dates: start: 20180815
  3. CHAMPIX [Suspect]
     Active Substance: VARENICLINE TARTRATE
     Indication: SMOKING CESSATION THERAPY
     Dosage: 1 MG, ONCE EVERY 12HR
     Route: 048
     Dates: start: 20190515
  4. ALPRAZOLAM ALTER [Suspect]
     Active Substance: ALPRAZOLAM
     Indication: PANIC REACTION
     Dosage: 0.5 MG, ONCE EVERY 6HR
     Route: 048
     Dates: start: 20020715
  5. FENOFIBRATO KERN PHARMA [Suspect]
     Active Substance: FENOFIBRATE
     Indication: BLOOD CHOLESTEROL INCREASED
     Dosage: 160 MG, QD
     Route: 048
     Dates: start: 20180815
  6. ADIRO [Suspect]
     Active Substance: ASPIRIN
     Indication: PLATELET AGGREGATION INHIBITION
     Dosage: 100 MG, QD
     Route: 048
     Dates: start: 20171215
  7. VENLAFAXINE HCL [Suspect]
     Active Substance: VENLAFAXINE HYDROCHLORIDE
     Indication: ANXIETY
     Dosage: 75 MG, QD
     Route: 048
     Dates: start: 20020715
  8. PARACETAMOL QUALIGEN [Concomitant]
     Indication: PAIN
     Dosage: 1 G, QD

REACTIONS (1)
  - Parasomnia [Not Recovered/Not Resolved]

NARRATIVE: CASE EVENT DATE: 20190701
